FAERS Safety Report 25697714 (Version 5)
Quarter: 2025Q4

REPORT INFORMATION
  Report Type: Report from Study
  Country: UY (occurrence: UY)
  Receive Date: 20250819
  Receipt Date: 20251112
  Transmission Date: 20260118
  Serious: Yes (Death, Hospitalization, Other)
  Sender: ABBVIE
  Company Number: UY-ABBVIE-6418442

PATIENT
  Age: 55 Year
  Sex: Male

DRUGS (2)
  1. VENCLEXTA [Suspect]
     Active Substance: VENETOCLAX
     Indication: Chronic lymphocytic leukaemia
     Dosage: 4 TABLETS OF 100MG?VENCLEXTA 100 MG X 120
     Route: 048
     Dates: start: 20250701, end: 20250908
  2. IMBRUVICA [Suspect]
     Active Substance: IBRUTINIB
     Indication: Product used for unknown indication
     Route: 048

REACTIONS (12)
  - Death [Fatal]
  - Nausea [Not Recovered/Not Resolved]
  - Pyrexia [Not Recovered/Not Resolved]
  - Hyperhidrosis [Recovered/Resolved]
  - Malaise [Recovered/Resolved]
  - Immunodeficiency [Recovered/Resolved]
  - Arrhythmia [Unknown]
  - Vomiting [Unknown]
  - Chronic lymphocytic leukaemia [Unknown]
  - Food intolerance [Unknown]
  - Drug ineffective [Unknown]
  - Sepsis [Unknown]

NARRATIVE: CASE EVENT DATE: 20250101
